FAERS Safety Report 8235099-8 (Version None)
Quarter: 2012Q1

REPORT INFORMATION
  Report Type: 
  Country: None (occurrence: None)
  Receive Date: 20120326
  Receipt Date: 20120320
  Transmission Date: 20120608
  Serious: Yes (Other)
  Sender: FDA-Public Use
  Company Number: FR-PFIZER INC-2012073255

PATIENT
  Age: 74 Year
  Sex: Female
  Weight: 67 kg

DRUGS (17)
  1. LEVOTHYROXINE SODIUM [Concomitant]
     Indication: PRIMARY HYPOTHYROIDISM
     Dosage: UNK
     Route: 048
     Dates: start: 20110112
  2. ESTREVA [Concomitant]
     Indication: BLOOD FOLLICLE STIMULATING HORMONE ABNORMAL
  3. LOVENOX [Concomitant]
     Indication: CARDIOVASCULAR DISORDER
     Dosage: UNK
     Dates: start: 20040913
  4. OMEPRAZOLE [Concomitant]
     Indication: ULCER
     Dosage: UNK
     Route: 048
     Dates: start: 20040913
  5. SOMATROPIN [Suspect]
     Indication: HYPOPITUITARISM
     Dosage: 0.3 MG, 1X/DAY, 7 INJECTION PER WEEK
     Dates: start: 20030923, end: 20040405
  6. SOMATROPIN [Suspect]
     Dosage: 0.3 MG, 1X/DAY, 7 INJECTION PER WEEK
     Route: 058
     Dates: start: 20050411, end: 20070604
  7. COUMADIN [Concomitant]
     Indication: CARDIOVASCULAR DISORDER
     Dosage: UNK
     Route: 048
     Dates: start: 20070605
  8. ARICEPT [Concomitant]
     Indication: DEMENTIA ALZHEIMER'S TYPE
     Dosage: UNK
     Route: 048
     Dates: start: 20040913, end: 20081128
  9. ESTREVA [Concomitant]
     Indication: HYPOGONADISM FEMALE
  10. FLECAINIDE ACETATE [Concomitant]
     Indication: CARDIOVASCULAR DISORDER
     Dosage: UNK
     Route: 048
     Dates: start: 20040215
  11. SOMATROPIN [Suspect]
     Dosage: 0.4 MG, 1X/DAY, 7 INJECTION PER WEEK
     Dates: start: 20040406, end: 20050410
  12. SURGESTONE [Concomitant]
     Indication: LUTEINISING HORMONE DEFICIENCY
     Dosage: UNK
     Route: 048
     Dates: start: 20030507, end: 20070605
  13. SURGESTONE [Concomitant]
     Indication: HYPOGONADISM FEMALE
  14. HYDROCORTISONE [Concomitant]
     Indication: BLOOD CORTICOTROPHIN ABNORMAL
     Dosage: UNK
     Route: 048
     Dates: start: 20031216
  15. LEVOTHYROXINE SODIUM [Concomitant]
     Indication: BLOOD THYROID STIMULATING HORMONE DECREASED
     Dosage: UNK
     Route: 048
     Dates: start: 20030507, end: 20110111
  16. SURGESTONE [Concomitant]
     Indication: BLOOD FOLLICLE STIMULATING HORMONE ABNORMAL
  17. ESTREVA [Concomitant]
     Indication: LUTEINISING HORMONE DEFICIENCY
     Dosage: UNK
     Route: 048
     Dates: start: 20030507, end: 20070605

REACTIONS (2)
  - CRANIOPHARYNGIOMA [None]
  - CONDITION AGGRAVATED [None]
